FAERS Safety Report 5020396-X (Version None)
Quarter: 2006Q2

REPORT INFORMATION
  Report Type: 
  Country: None (occurrence: None)
  Receive Date: 20060606
  Receipt Date: 20060530
  Transmission Date: 20061013
  Serious: Yes (Hospitalization)
  Sender: FDA-Public Use
  Company Number: SU-2006-004992

PATIENT
  Age: 33 Year
  Sex: Female
  Weight: 81.6475 kg

DRUGS (7)
  1. WELCHOL [Suspect]
     Indication: BLOOD CHOLESTEROL
     Dosage: 1250 MG BID PO
     Route: 048
     Dates: start: 20060115
  2. ZYRTEC [Concomitant]
  3. NASONEX [Concomitant]
  4. FIBERCON [Concomitant]
  5. PEPCID AC [Concomitant]
  6. ORTHO TRI-CYCLEN [Concomitant]
  7. IMODIUM A-D [Concomitant]

REACTIONS (3)
  - ABDOMINAL PAIN [None]
  - INTESTINAL OBSTRUCTION [None]
  - PROCEDURAL PAIN [None]
